FAERS Safety Report 24162480 (Version 1)
Quarter: 2024Q3

REPORT INFORMATION
  Report Type: Spontaneous
  Country: US (occurrence: None)
  Receive Date: 20240731
  Receipt Date: 20240731
  Transmission Date: 20241016
  Serious: Yes (Life-Threatening)
  Sender: Public
  Company Number: None

PATIENT
  Age: 58 Year
  Sex: Female
  Weight: 49.5 kg

DRUGS (1)
  1. LINZESS [Suspect]
     Active Substance: LINACLOTIDE
     Indication: Irritable bowel syndrome
     Dosage: 90 CAPSULES DAILY ORAL ?
     Route: 048
     Dates: start: 20240618, end: 20240619

REACTIONS (2)
  - Heart rate increased [None]
  - Therapy cessation [None]

NARRATIVE: CASE EVENT DATE: 20240618
